FAERS Safety Report 7715967-3 (Version None)
Quarter: 2011Q3

REPORT INFORMATION
  Report Type: 
  Country: None (occurrence: None)
  Receive Date: 20110823
  Receipt Date: 20110809
  Transmission Date: 20111222
  Serious: Yes (Hospitalization)
  Sender: FDA-Public Use
  Company Number: 1000022933

PATIENT
  Age: 84 Year
  Sex: Female

DRUGS (3)
  1. MEMANTINE [Suspect]
     Indication: DEMENTIA
     Dosage: 5 MG 95 MG, 1 IN 1 D), ORAL
     Route: 048
     Dates: start: 20110625, end: 20110629
  2. ARICEPT [Concomitant]
  3. ADETPHOS (ADENOSINE  5'-TRIPHOSPHATE DISODIUM) [Concomitant]

REACTIONS (6)
  - BLOOD SODIUM DECREASED [None]
  - HYPOGLYCAEMIA [None]
  - COGNITIVE DISORDER [None]
  - BLOOD ALKALINE PHOSPHATASE INCREASED [None]
  - BLOOD GLUCOSE INCREASED [None]
  - ACIDOSIS [None]
